FAERS Safety Report 18618009 (Version 1)
Quarter: 2020Q4

REPORT INFORMATION
  Report Type: Spontaneous
  Country: US (occurrence: US)
  Receive Date: 20201215
  Receipt Date: 20201215
  Transmission Date: 20210114
  Serious: Yes (Other)
  Sender: FDA-Public Use
  Company Number: US-GLAXOSMITHKLINE-US2020AMR245172

PATIENT
  Age: 82 Year

DRUGS (1)
  1. ADVAIR DISKUS [Suspect]
     Active Substance: FLUTICASONE PROPIONATE\SALMETEROL XINAFOATE
     Indication: ASTHMA
     Dosage: UNK (250/50) FOR 25 YRS

REACTIONS (4)
  - Oropharyngeal pain [Unknown]
  - Dysphagia [Unknown]
  - Precancerous condition [Unknown]
  - Wrong technique in device usage process [Unknown]
